FAERS Safety Report 12779705 (Version 1)
Quarter: 2016Q3

REPORT INFORMATION
  Report Type: Spontaneous
  Country: US (occurrence: US)
  Receive Date: 20160924
  Receipt Date: 20160924
  Transmission Date: 20161109
  Serious: Yes (Disabling)
  Sender: FDA-Public Use
  Company Number: None

PATIENT
  Age: 58 Year
  Sex: Female
  Weight: 110.25 kg

DRUGS (12)
  1. BENADRYL [Concomitant]
     Active Substance: DIPHENHYDRAMINE HYDROCHLORIDE
  2. CLINDAMYCIN [Suspect]
     Active Substance: CLINDAMYCIN\CLINDAMYCIN PHOSPHATE
     Indication: ANIMAL BITE
     Dosage: OTHER STRENGTH:;OTHER DOSE:;OTHER FREQUENCY:ONE TIME IN ER;OTHER ROUTE:
     Route: 042
  3. OXYCODONE [Concomitant]
     Active Substance: OXYCODONE
  4. BENTYL [Concomitant]
     Active Substance: DICYCLOMINE HYDROCHLORIDE
  5. VANCOMYCIN [Suspect]
     Active Substance: VANCOMYCIN
     Route: 042
  6. CLARITIN [Concomitant]
     Active Substance: LORATADINE
  7. SACCHROMYCES BOULARDII PROBIOTIC [Concomitant]
  8. Q96 MULTI VITAMIN [Concomitant]
  9. FLONASE [Concomitant]
     Active Substance: FLUTICASONE PROPIONATE
  10. FLOVENT [Concomitant]
     Active Substance: FLUTICASONE PROPIONATE
  11. TYLENOL [Suspect]
     Active Substance: ACETAMINOPHEN
  12. ASPIRIN. [Concomitant]
     Active Substance: ASPIRIN

REACTIONS (8)
  - Clostridium difficile infection [None]
  - Vomiting [None]
  - Asthenia [None]
  - Gastrointestinal motility disorder [None]
  - Dehydration [None]
  - Impaired work ability [None]
  - Pain [None]
  - Activities of daily living impaired [None]

NARRATIVE: CASE EVENT DATE: 20140922
